FAERS Safety Report 7395095-X (Version None)
Quarter: 2011Q2

REPORT INFORMATION
  Report Type: 
  Country: None (occurrence: None)
  Receive Date: 20110405
  Receipt Date: 20110331
  Transmission Date: 20111010
  Serious: Yes (Hospitalization)
  Sender: FDA-Public Use
  Company Number: SE-PFIZER INC-HQWYE721701DEC04

PATIENT
  Age: 60 Year
  Sex: Male

DRUGS (4)
  1. CORDARONE [Suspect]
     Indication: VENTRICULAR TACHYCARDIA
     Dosage: 100 MG, 1X/DAY
     Route: 048
     Dates: start: 19900101, end: 20040503
  2. DIFLUCAN [Suspect]
     Indication: FUNGAL INFECTION
     Dosage: UNSPECIFIED
     Route: 048
     Dates: start: 20040426, end: 20040430
  3. SELOKEN [Suspect]
     Dosage: 100 MG, UNK
     Route: 048
     Dates: start: 19900101
  4. KAVEPENIN [Suspect]
     Indication: NASOPHARYNGITIS
     Dosage: UNSPECIFIED
     Route: 048
     Dates: start: 20040416, end: 20040418

REACTIONS (2)
  - RHABDOMYOLYSIS [None]
  - DERMATOMYOSITIS [None]
